FAERS Safety Report 16516967 (Version 1)
Quarter: 2019Q3

REPORT INFORMATION
  Report Type: Report from Study
  Country: US (occurrence: US)
  Receive Date: 20190702
  Receipt Date: 20190702
  Transmission Date: 20191004
  Serious: Yes (Hospitalization, Other)
  Sender: FDA-Public Use
  Company Number: US-AMGEN-USASL2019102108

PATIENT
  Age: 68 Year
  Sex: Female

DRUGS (1)
  1. PROLIA [Suspect]
     Active Substance: DENOSUMAB
     Indication: OSTEOPOROSIS POSTMENOPAUSAL
     Dosage: UNK
     Route: 065
     Dates: start: 2017

REACTIONS (13)
  - Weight increased [Unknown]
  - Bladder disorder [Unknown]
  - Blood cholesterol increased [Unknown]
  - Foot fracture [Unknown]
  - Headache [Unknown]
  - Haemoglobin decreased [Unknown]
  - Haematocrit decreased [Unknown]
  - Hypoaesthesia [Unknown]
  - Spinal fracture [Unknown]
  - Diverticulitis [Unknown]
  - Lung disorder [Unknown]
  - Fungal infection [Unknown]
  - Back pain [Unknown]

NARRATIVE: CASE EVENT DATE: 2017
